FAERS Safety Report 5171370-4 (Version None)
Quarter: 2006Q4

REPORT INFORMATION
  Report Type: 
  Country: None (occurrence: None)
  Receive Date: 20061213
  Receipt Date: 20060929
  Transmission Date: 20070319
  Serious: Yes (Other)
  Sender: FDA-Public Use
  Company Number: US-AMGEN-US195297

PATIENT
  Age: 54 Year
  Sex: Female

DRUGS (11)
  1. ENBREL [Suspect]
     Indication: RHEUMATOID ARTHRITIS
     Route: 058
     Dates: start: 20030602
  2. VERAPAMIL [Concomitant]
     Route: 065
  3. NORFLEX [Concomitant]
     Route: 065
  4. LORTAB [Concomitant]
     Route: 065
  5. PREVACID [Concomitant]
     Route: 065
  6. ALLEGRA [Concomitant]
     Route: 065
  7. KETOPROFEN [Concomitant]
     Route: 065
  8. WELLBUTRIN [Concomitant]
     Route: 065
  9. AMBIEN [Concomitant]
     Route: 065
  10. TRANXENE [Concomitant]
     Route: 065
  11. LEVOTHYROXINE SODIUM [Concomitant]
     Route: 065

REACTIONS (1)
  - MALIGNANT MELANOMA [None]
